FAERS Safety Report 7355949-7 (Version None)
Quarter: 2011Q1

REPORT INFORMATION
  Report Type: 
  Country: None (occurrence: None)
  Receive Date: 20110316
  Receipt Date: 20110310
  Transmission Date: 20110831
  Serious: Yes (Hospitalization, Other)
  Sender: FDA-Public Use
  Company Number: JP-CEPHALON-2011001213

PATIENT
  Age: 59 Year
  Sex: Male

DRUGS (2)
  1. BENDAMUSTINE HCL [Suspect]
     Indication: MANTLE CELL LYMPHOMA
     Route: 042
     Dates: start: 20110118
  2. RITUXIMAB [Concomitant]
     Dates: start: 20110209

REACTIONS (2)
  - BONE MARROW FAILURE [None]
  - MONOPLEGIA [None]
